FAERS Safety Report 10621650 (Version 1)
Quarter: 2014Q4

REPORT INFORMATION
  Report Type: Spontaneous
  Country: US (occurrence: None)
  Receive Date: 20141201
  Receipt Date: 20141201
  Transmission Date: 20150529
  Serious: Yes (Other)
  Sender: FDA-Public Use
  Company Number: None

PATIENT
  Age: 39 Year
  Sex: Female
  Weight: 149.69 kg

DRUGS (1)
  1. SUBOXONE (8 MG, 2 MG) [Suspect]
     Active Substance: BUPRENORPHINE HYDROCHLORIDE\NALOXONE HYDROCHLORIDE
     Indication: DRUG DEPENDENCE
     Dosage: 1 FILM  THREE TIMES DAILY  TAKEN UNDER THE TONGUE
     Dates: start: 20141121, end: 20141128

REACTIONS (6)
  - Rash pruritic [None]
  - Pain in extremity [None]
  - Peripheral swelling [None]
  - Skin haemorrhage [None]
  - Scratch [None]
  - Middle insomnia [None]

NARRATIVE: CASE EVENT DATE: 20141121
